FAERS Safety Report 16755392 (Version 1)
Quarter: 2019Q3

REPORT INFORMATION
  Report Type: Spontaneous
  Country: US (occurrence: US)
  Receive Date: 20190829
  Receipt Date: 20190829
  Transmission Date: 20191005
  Serious: Yes (Hospitalization, Other)
  Sender: FDA-Public Use
  Company Number: US-UNITED THERAPEUTICS-UNT-2019-014262

PATIENT
  Age: 54 Year
  Sex: Female
  Weight: 84.35 kg

DRUGS (3)
  1. COUMADIN [Concomitant]
     Active Substance: WARFARIN SODIUM
     Indication: PRODUCT USED FOR UNKNOWN INDICATION
     Route: 065
  2. LETAIRIS [Concomitant]
     Active Substance: AMBRISENTAN
     Indication: PRODUCT USED FOR UNKNOWN INDICATION
     Route: 065
  3. REMODULIN [Suspect]
     Active Substance: TREPROSTINIL
     Indication: PULMONARY ARTERIAL HYPERTENSION
     Dosage: 0.075 ?G/KG, CONTINUING
     Route: 041
     Dates: start: 20190812

REACTIONS (7)
  - Vascular device infection [Unknown]
  - Catheter site erythema [Unknown]
  - Catheter site pain [Unknown]
  - Oropharyngeal pain [Recovered/Resolved]
  - Catheter site swelling [Unknown]
  - Throat irritation [Recovered/Resolved]
  - Catheter site abscess [Unknown]

NARRATIVE: CASE EVENT DATE: 201908
